FAERS Safety Report 6212275-7 (Version None)
Quarter: 2009Q2

REPORT INFORMATION
  Report Type: 
  Country: None (occurrence: None)
  Receive Date: 20090529
  Receipt Date: 20090515
  Transmission Date: 20091009
  Serious: Yes (Hospitalization, Other)
  Sender: FDA-Public Use
  Company Number: ADE# 09-225DPR

PATIENT
  Age: 80 Year
  Sex: Male

DRUGS (7)
  1. DIGOXIN [Suspect]
     Indication: ATRIAL FIBRILLATION
     Dosage: ONE TABLET DAILY
     Dates: start: 20090201, end: 20090401
  2. CLONIDINE [Concomitant]
  3. FISH OIL DAILY [Concomitant]
  4. VITAMIN FOR MACULAR DEGENERATION [Concomitant]
  5. TOPROLOL [Concomitant]
  6. SIMVASTATIN [Concomitant]
  7. GABAPENTIN [Concomitant]

REACTIONS (4)
  - HEART RATE DECREASED [None]
  - HEART RATE IRREGULAR [None]
  - MALAISE [None]
  - PALPITATIONS [None]
